FAERS Safety Report 9474519 (Version 1)
Quarter: 2013Q3

REPORT INFORMATION
  Report Type: Spontaneous
  Country: US (occurrence: US)
  Receive Date: 20130823
  Receipt Date: 20130823
  Transmission Date: 20140515
  Serious: No
  Sender: FDA-Public Use
  Company Number: US-009507513-1308USA006942

PATIENT
  Age: 44 Year
  Sex: Male

DRUGS (4)
  1. TEMODAR [Suspect]
     Indication: ASTROCYTOMA
     Dosage: 150 MG, QD
     Route: 048
  2. TEMODAR [Suspect]
     Indication: GLIOMATOSIS CEREBRI
  3. BEVACIZUMAB [Suspect]
     Indication: ASTROCYTOMA
     Dosage: 10 MG/KG,EVERY TWO WEEKS
  4. BEVACIZUMAB [Suspect]
     Indication: GLIOMATOSIS CEREBRI

REACTIONS (2)
  - Blood sodium increased [Recovered/Resolved]
  - Specific gravity urine decreased [Recovered/Resolved]
